FAERS Safety Report 8525676-9 (Version None)
Quarter: 2012Q3

REPORT INFORMATION
  Report Type: 
  Country: None (occurrence: None)
  Receive Date: 20120720
  Receipt Date: 20120716
  Transmission Date: 20120928
  Serious: Yes (Other)
  Sender: FDA-Public Use
  Company Number: US-009507513-1207USA006028

PATIENT

DRUGS (1)
  1. PEG-INTRON [Suspect]

REACTIONS (3)
  - HOMICIDE [None]
  - HAEMATOCRIT DECREASED [None]
  - DEPRESSION [None]
